FAERS Safety Report 5642885-7 (Version None)
Quarter: 2008Q1

REPORT INFORMATION
  Report Type: 
  Country: None (occurrence: None)
  Receive Date: 20080227
  Receipt Date: 20080227
  Transmission Date: 20080703
  Serious: Yes (Life-Threatening, Hospitalization)
  Sender: FDA-Public Use
  Company Number: None

PATIENT
  Age: 23 Year
  Sex: Female
  Weight: 61.2356 kg

DRUGS (1)
  1. OPANA [Suspect]
     Indication: HYPERSENSITIVITY
     Dosage: 20  MG  ET  1 PER EVERY 12HRS  PO
     Route: 048
     Dates: start: 20080219, end: 20080222

REACTIONS (11)
  - AURICULAR SWELLING [None]
  - DYSPNOEA EXERTIONAL [None]
  - EYELID OEDEMA [None]
  - LIP SWELLING [None]
  - NASAL OEDEMA [None]
  - PERIORBITAL OEDEMA [None]
  - PHARYNGEAL OEDEMA [None]
  - RESPIRATORY DEPRESSION [None]
  - SKIN IRRITATION [None]
  - SWELLING FACE [None]
  - SWOLLEN TONGUE [None]
